FAERS Safety Report 10183829 (Version 1)
Quarter: 2014Q2

REPORT INFORMATION
  Report Type: Spontaneous
  Country: US (occurrence: US)
  Receive Date: 20140520
  Receipt Date: 20140520
  Transmission Date: 20141212
  Serious: Yes (Other)
  Sender: FDA-Public Use
  Company Number: US-JNJFOC-20140509394

PATIENT
  Age: 50 Year
  Sex: Male
  Weight: 94 kg

DRUGS (6)
  1. INVOKANA [Suspect]
     Indication: TYPE 2 DIABETES MELLITUS
     Route: 048
     Dates: start: 201402, end: 201405
  2. GLIMEPIRIDE [Concomitant]
     Indication: TYPE 2 DIABETES MELLITUS
     Dates: start: 2010
  3. TRICOR [Concomitant]
     Indication: DYSLIPIDAEMIA
     Dates: start: 2011
  4. LIPITOR [Concomitant]
     Indication: DYSLIPIDAEMIA
     Dates: start: 2012
  5. ALLOPURINOL [Concomitant]
     Indication: GOUT
     Dates: start: 2010
  6. JANUVIA [Concomitant]
     Indication: TYPE 2 DIABETES MELLITUS
     Dates: start: 2012

REACTIONS (1)
  - Renal failure acute [Unknown]
